FAERS Safety Report 7688114-4 (Version None)
Quarter: 2011Q3

REPORT INFORMATION
  Report Type: 
  Country: None (occurrence: None)
  Receive Date: 20110817
  Receipt Date: 20110805
  Transmission Date: 20111222
  Serious: Yes (Hospitalization)
  Sender: FDA-Public Use
  Company Number: FR-ELI_LILLY_AND_COMPANY-FR201108001856

PATIENT
  Sex: Female

DRUGS (4)
  1. ZOLPIDEM [Concomitant]
     Indication: INSOMNIA
     Dosage: 10 MG, QD
     Route: 048
     Dates: start: 20100101, end: 20110519
  2. CYMBALTA [Suspect]
     Indication: DEPRESSION
     Dosage: 60 MG, UNK
     Route: 048
     Dates: start: 20110112, end: 20110519
  3. TRANXENE [Concomitant]
     Indication: ANXIETY
     Dosage: 5 MG, BID
     Route: 048
     Dates: start: 20100101, end: 20110519
  4. FUROSEMIDE [Concomitant]
     Indication: HYPERTENSION
     Dosage: 1 DF, QD
     Route: 048
     Dates: start: 20100401, end: 20110519

REACTIONS (10)
  - SOMNOLENCE [None]
  - FALL [None]
  - HYPOMANIA [None]
  - MALAISE [None]
  - SELF-MEDICATION [None]
  - LOGORRHOEA [None]
  - MANIA [None]
  - LOSS OF CONSCIOUSNESS [None]
  - DIZZINESS [None]
  - WEIGHT DECREASED [None]
